FAERS Safety Report 10688596 (Version 1)
Quarter: 2015Q1

REPORT INFORMATION
  Report Type: Spontaneous
  Country: FR (occurrence: JP)
  Receive Date: 20150102
  Receipt Date: 20150102
  Transmission Date: 20150720
  Serious: Yes (Hospitalization)
  Sender: FDA-Public Use
  Company Number: JP-FRI-1000073394

PATIENT
  Age: 45 Year
  Sex: Male

DRUGS (3)
  1. MILNACIPRAN [Suspect]
     Active Substance: MILNACIPRAN
     Route: 048
     Dates: start: 201001, end: 201004
  2. MILNACIPRAN [Suspect]
     Active Substance: MILNACIPRAN
     Route: 048
     Dates: start: 200903, end: 201001
  3. MILNACIPRAN [Suspect]
     Active Substance: MILNACIPRAN
     Route: 048
     Dates: start: 200711, end: 200903

REACTIONS (2)
  - Dystonia [Unknown]
  - Tardive dyskinesia [Unknown]
